FAERS Safety Report 7652595-2 (Version None)
Quarter: 2011Q3

REPORT INFORMATION
  Report Type: 
  Country: None (occurrence: None)
  Receive Date: 20110801
  Receipt Date: 20110801
  Transmission Date: 20111222
  Serious: Yes (Other)
  Sender: FDA-Public Use
  Company Number: None

PATIENT
  Age: 86 Year
  Sex: Female

DRUGS (1)
  1. MAXIMUM STRENGTH ORAL PAIN RELIEF GEL 20% BENZOCAINE [Suspect]
     Dates: start: 20110712, end: 20110712

REACTIONS (1)
  - APPLICATION SITE PAPULES [None]
